FAERS Safety Report 14928691 (Version 3)
Quarter: 2018Q3

REPORT INFORMATION
  Report Type: Spontaneous
  Country: US (occurrence: US)
  Receive Date: 20180523
  Receipt Date: 20180720
  Transmission Date: 20181010
  Serious: Yes (Hospitalization, Disabling, Other)
  Sender: FDA-Public Use
  Company Number: US-BIOVITRUM-2018US0567

PATIENT
  Sex: Female

DRUGS (23)
  1. KINERET [Suspect]
     Active Substance: ANAKINRA
  2. HUMIRA [Suspect]
     Active Substance: ADALIMUMAB
  3. METHOTREXATE. [Suspect]
     Active Substance: METHOTREXATE
  4. MIRTAZAPINE. [Concomitant]
     Active Substance: MIRTAZAPINE
  5. REQUIP [Concomitant]
     Active Substance: ROPINIROLE HYDROCHLORIDE
  6. HYDROCODONE [Concomitant]
     Active Substance: HYDROCODONE
  7. ULTRACET [Concomitant]
     Active Substance: ACETAMINOPHEN\TRAMADOL HYDROCHLORIDE
  8. ONDANSETRON [Concomitant]
     Active Substance: ONDANSETRON
  9. GERITOL [Concomitant]
     Active Substance: MINERALS\VITAMINS
  10. ENBREL [Suspect]
     Active Substance: ETANERCEPT
  11. PREDNISONE. [Concomitant]
     Active Substance: PREDNISONE
  12. OMEPRAZOLE. [Concomitant]
     Active Substance: OMEPRAZOLE
  13. ORENCIA [Suspect]
     Active Substance: ABATACEPT
  14. GABAPENTIN. [Concomitant]
     Active Substance: GABAPENTIN
  15. HYDROXYCHLOROQUINE [Concomitant]
     Active Substance: HYDROXYCHLOROQUINE
  16. CALCIUM PLUS D3 [Concomitant]
  17. XELJANZ [Suspect]
     Active Substance: TOFACITINIB CITRATE
  18. PREDNISONE. [Concomitant]
     Active Substance: PREDNISONE
  19. TYLENOL WITH CODEINE [Concomitant]
     Active Substance: ACETAMINOPHEN\CODEINE PHOSPHATE
  20. TRAMADOL HYDROCHLORIDE AND ACETAMINOPHEN [Concomitant]
     Active Substance: ACETAMINOPHEN\TRAMADOL HYDROCHLORIDE
  21. LISINOPRIL. [Concomitant]
     Active Substance: LISINOPRIL
  22. CALCIUM PLUS VITAMIN D [Concomitant]
     Active Substance: CALCIUM\VITAMIN D
  23. FOLIC ACID. [Concomitant]
     Active Substance: FOLIC ACID

REACTIONS (26)
  - Urinary tract infection [Unknown]
  - Spinal operation [Unknown]
  - Decubitus ulcer [Unknown]
  - Varicose ulceration [Unknown]
  - Osteoarthritis [Unknown]
  - Decreased appetite [Unknown]
  - Nausea [Unknown]
  - Spinal deformity [Unknown]
  - Dry mouth [Unknown]
  - Post procedural complication [Not Recovered/Not Resolved]
  - Skin atrophy [Unknown]
  - Oedema peripheral [Unknown]
  - Skin disorder [Unknown]
  - Bone disorder [Unknown]
  - Hypergammaglobulinaemia [Unknown]
  - Lung disorder [Unknown]
  - Skin hyperpigmentation [Unknown]
  - Cushingoid [Unknown]
  - Drug ineffective [Unknown]
  - Grimacing [Unknown]
  - Respiratory tract infection [Unknown]
  - Pain [Unknown]
  - Diarrhoea [Unknown]
  - Joint effusion [Unknown]
  - Rhonchi [Unknown]
  - Dry eye [Unknown]

NARRATIVE: CASE EVENT DATE: 2017
